FAERS Safety Report 17400811 (Version 2)
Quarter: 2020Q1

REPORT INFORMATION
  Report Type: Spontaneous
  Country: PL (occurrence: PL)
  Receive Date: 20200211
  Receipt Date: 20200305
  Transmission Date: 20200409
  Serious: Yes (Other)
  Sender: FDA-Public Use
  Company Number: PL-ROCHE-2541695

PATIENT
  Age: 44 Year
  Sex: Male
  Weight: 72 kg

DRUGS (11)
  1. METHYLPREDNISOLONE. [Suspect]
     Active Substance: METHYLPREDNISOLONE
     Indication: PROPHYLAXIS AGAINST TRANSPLANT REJECTION
     Route: 065
  2. PREDNISONE. [Suspect]
     Active Substance: PREDNISONE
     Route: 065
     Dates: start: 20150519
  3. CYCLOSPORINE. [Suspect]
     Active Substance: CYCLOSPORINE
     Indication: PROPHYLAXIS AGAINST TRANSPLANT REJECTION
     Dosage: LEVELS 33.68-56.6 NG/ML
     Route: 065
     Dates: start: 19990720, end: 20151028
  4. CYCLOSPORINE. [Suspect]
     Active Substance: CYCLOSPORINE
     Dosage: LEVELS 33.68-56.6 NG/ML
     Route: 065
     Dates: start: 20160103
  5. LEFLUNOMIDE. [Suspect]
     Active Substance: LEFLUNOMIDE
     Indication: PROPHYLAXIS AGAINST TRANSPLANT REJECTION
     Route: 065
     Dates: start: 201410, end: 201502
  6. RITUXIMAB. [Suspect]
     Active Substance: RITUXIMAB
     Indication: EPSTEIN-BARR VIRUS ASSOCIATED LYMPHOMA
     Dosage: 8 COURSES
     Route: 065
     Dates: start: 201401, end: 201410
  7. VINBLASTINE [Suspect]
     Active Substance: VINBLASTINE
     Indication: EPSTEIN-BARR VIRUS ASSOCIATED LYMPHOMA
     Dosage: 6 COURSES
     Route: 065
     Dates: start: 201401, end: 201410
  8. MYCOPHENOLATE MOFETIL. [Suspect]
     Active Substance: MYCOPHENOLATE MOFETIL
     Indication: PROPHYLAXIS AGAINST TRANSPLANT REJECTION
     Route: 065
     Dates: start: 19990720, end: 20150217
  9. PREDNISONE. [Suspect]
     Active Substance: PREDNISONE
     Indication: PROPHYLAXIS AGAINST TRANSPLANT REJECTION
     Route: 065
     Dates: start: 19990722, end: 20031210
  10. MEROPENEM. [Concomitant]
     Active Substance: MEROPENEM
  11. DOXORUBICIN [Concomitant]
     Active Substance: DOXORUBICIN
     Indication: EPSTEIN-BARR VIRUS ASSOCIATED LYMPHOMA
     Dosage: 6 COURSES
     Route: 065
     Dates: start: 201401, end: 201410

REACTIONS (13)
  - Staphylococcal sepsis [Recovered/Resolved]
  - Cytomegalovirus infection [Recovered/Resolved]
  - Encephalitis fungal [Unknown]
  - Epstein-Barr virus associated lymphoma [Unknown]
  - Bronchitis bacterial [Recovered/Resolved with Sequelae]
  - C-reactive protein increased [Recovered/Resolved with Sequelae]
  - Cardiac failure [Recovered/Resolved]
  - Staphylococcal infection [Recovered/Resolved]
  - Anaemia [Recovered/Resolved]
  - Oral herpes [Recovered/Resolved]
  - Pneumonia [Unknown]
  - Endocarditis [Recovered/Resolved with Sequelae]
  - Lung abscess [Recovered/Resolved with Sequelae]

NARRATIVE: CASE EVENT DATE: 20130610
